FAERS Safety Report 15362073 (Version 1)
Quarter: 2018Q3

REPORT INFORMATION
  Report Type: Spontaneous
  Country: US (occurrence: US)
  Receive Date: 20180907
  Receipt Date: 20180907
  Transmission Date: 20181010
  Serious: Yes (Other)
  Sender: FDA-Public Use
  Company Number: US-FRESENIUS KABI-FK201809388

PATIENT
  Age: 6 Year
  Sex: Female

DRUGS (7)
  1. VINCRISTINE [Suspect]
     Active Substance: VINCRISTINE
     Indication: BURKITT^S LYMPHOMA
     Dosage: ON DAY1
     Route: 042
  2. PREDNISONE. [Suspect]
     Active Substance: PREDNISONE
     Indication: BURKITT^S LYMPHOMA
     Dosage: 60 MG/M2/DAY Q12H ON DAYS 1?5 FOLLOWED BY TAPER OVER 3 DAYS
     Route: 048
  3. VINBLASTINE (MANUFACTURER UNKNOWN) [Suspect]
     Active Substance: VINBLASTINE
     Dosage: 1.5 G/M2 ON DAY 1
     Route: 042
  4. CYCLOPHOSPHAMIDE. [Suspect]
     Active Substance: CYCLOPHOSPHAMIDE
     Indication: BURKITT^S LYMPHOMA
     Dosage: 250 MG/M2 Q12H?6 DOSES ON DAYS
     Route: 042
  5. DOXORUBICIN (MANUFACTURER UNKNOWN) [Suspect]
     Active Substance: DOXORUBICIN
     Indication: BURKITT^S LYMPHOMA
     Dosage: ON DAY 1
     Route: 042
  6. GRANULOCYTE?COLONY STIMULATING FACTOR [Concomitant]
     Active Substance: FILGRASTIM
     Indication: BURKITT^S LYMPHOMA
  7. VINBLASTINE (MANUFACTURER UNKNOWN) [Suspect]
     Active Substance: VINBLASTINE
     Indication: BURKITT^S LYMPHOMA
     Dosage: ON DAY 6
     Route: 042

REACTIONS (3)
  - Mucosal inflammation [Unknown]
  - Neutropenia [Unknown]
  - Pyrexia [Unknown]
